FAERS Safety Report 19435939 (Version 2)
Quarter: 2021Q4

REPORT INFORMATION
  Report Type: Report from Study
  Country: JP (occurrence: None)
  Receive Date: 20210618
  Receipt Date: 20211212
  Transmission Date: 20220303
  Serious: Yes (Hospitalization)
  Sender: FDA-Public Use
  Company Number: JP-ROCHE-2806133

PATIENT
  Age: 69 Year
  Sex: Male
  Weight: 57.4 kg

DRUGS (28)
  1. ATEZOLIZUMAB [Suspect]
     Active Substance: ATEZOLIZUMAB
     Indication: Hepatocellular carcinoma
     Dosage: ON 15/DEC/2020, HE RECEIVED MOST RECENT DOSE OF ATEZOLIZUMAB (1200 MG) PRIOR TO ONSET OF ADVERSE EVE
     Route: 041
     Dates: start: 20201124
  2. BEVACIZUMAB [Suspect]
     Active Substance: BEVACIZUMAB
     Indication: Hepatocellular carcinoma
     Dosage: ON 15/DEC/2020, HE RECEIVED MOST RECENT DOSE OF BEVACIZUMAB (890 MG) PRIOR TO ONSET OF ADVERSE EVENT
     Route: 042
     Dates: start: 20201124
  3. URSODIOL [Concomitant]
     Active Substance: URSODIOL
     Indication: Hepatitis C
     Dates: start: 20120818
  4. CAMOSTAT MESYLATE [Concomitant]
     Active Substance: CAMOSTAT MESYLATE
     Indication: Pancreatitis chronic
     Dates: start: 20120818
  5. BIOFERMIN [BACILLUS SUBTILIS;LACTOMIN] [Concomitant]
     Indication: Irritable bowel syndrome
     Dates: start: 20120820
  6. MIGLITOL OD [Concomitant]
     Indication: Type 1 diabetes mellitus
     Dates: start: 20120818
  7. MEPENZOLATE BROMIDE [Concomitant]
     Active Substance: MEPENZOLATE BROMIDE
     Indication: Irritable bowel syndrome
     Dates: start: 20161104
  8. LORATADINE [Concomitant]
     Active Substance: LORATADINE
     Indication: Dermatitis allergic
     Dates: start: 20120818
  9. LANSOPRAZOLE [Concomitant]
     Active Substance: LANSOPRAZOLE
     Indication: Gastritis
     Dates: start: 20170120
  10. AMLODIPINE [Concomitant]
     Active Substance: AMLODIPINE BESYLATE
     Indication: Hypertension
     Dates: start: 20170901
  11. OLMESARTAN MEDOXOMIL [Concomitant]
     Active Substance: OLMESARTAN MEDOXOMIL
     Indication: Hypertension
     Dates: start: 20150716
  12. ZOPICLONE [Concomitant]
     Active Substance: ZOPICLONE
     Indication: Insomnia
     Dates: start: 20170407
  13. LOPERAMIDE HYDROCHLORIDE [Concomitant]
     Active Substance: LOPERAMIDE HYDROCHLORIDE
     Indication: Irritable bowel syndrome
     Dates: start: 20141002
  14. TAMSULOSIN HYDROCHLORIDE [Concomitant]
     Active Substance: TAMSULOSIN HYDROCHLORIDE
     Indication: Benign prostatic hyperplasia
     Dates: start: 20190712
  15. KETOPROFEN [Concomitant]
     Active Substance: KETOPROFEN
     Indication: Arthritis
     Dates: start: 20120813
  16. KETOPROFEN [Concomitant]
     Active Substance: KETOPROFEN
     Indication: Back pain
  17. HUMALOG MIX50/50 [Concomitant]
     Active Substance: INSULIN LISPRO
     Indication: Type 1 diabetes mellitus
     Dates: start: 20201022
  18. BROTIZOLAM [Concomitant]
     Active Substance: BROTIZOLAM
     Indication: Insomnia
     Dates: start: 20201225
  19. ORTEXER [Concomitant]
     Indication: Stomatitis
     Route: 061
     Dates: start: 20201225, end: 20201225
  20. REMITCH OD [Concomitant]
     Indication: Pruritus
     Dates: start: 20210309, end: 20210314
  21. XYZAL [Concomitant]
     Active Substance: LEVOCETIRIZINE DIHYDROCHLORIDE
     Indication: Pruritus
     Dates: start: 20210313, end: 20210317
  22. CHONDROITIN SULFATE (BOVINE) [Concomitant]
     Active Substance: CHONDROITIN SULFATE (BOVINE)
     Indication: Pruritus
     Dates: start: 20210312
  23. HYDROXYZINE HYDROCHLORIDE [Concomitant]
     Active Substance: HYDROXYZINE HYDROCHLORIDE
     Indication: Biopsy kidney
     Route: 051
     Dates: start: 20210407, end: 20210407
  24. XYLOCAIN [Concomitant]
     Indication: Anaesthesia
     Dates: start: 20210407, end: 20210407
  25. CALCIUM CHLORIDE\POTASSIUM CHLORIDE\SODIUM ACETATE\SODIUM CHLORIDE [Concomitant]
     Active Substance: CALCIUM CHLORIDE\POTASSIUM CHLORIDE\SODIUM ACETATE\SODIUM CHLORIDE
     Indication: Fluid replacement
     Dates: start: 20210407, end: 20210407
  26. DEXTROSE\SODIUM CHLORIDE\SODIUM LACTATE [Concomitant]
     Active Substance: DEXTROSE\SODIUM CHLORIDE\SODIUM LACTATE
     Indication: Fluid replacement
     Dates: start: 20210406, end: 20210408
  27. PENTAZOCINE [Concomitant]
     Active Substance: PENTAZOCINE
     Indication: Biopsy kidney
     Dates: start: 20210407, end: 20210407
  28. HUMULIN NOS [Concomitant]
     Active Substance: INSULIN HUMAN
     Indication: Type 1 diabetes mellitus
     Dates: start: 20210406, end: 20210408

REACTIONS (1)
  - Renal impairment [Recovering/Resolving]

NARRATIVE: CASE EVENT DATE: 20210105
